FAERS Safety Report 16762706 (Version 1)
Quarter: 2019Q3

REPORT INFORMATION
  Report Type: Spontaneous
  Country: AU (occurrence: AU)
  Receive Date: 20190901
  Receipt Date: 20190901
  Transmission Date: 20191005
  Serious: Yes (Congenital Anomaly, Other)
  Sender: FDA-Public Use
  Company Number: AU-TEVA-2019-AU-1099835

PATIENT
  Age: 69 Year
  Sex: Male

DRUGS (1)
  1. IMATINIB. [Suspect]
     Active Substance: IMATINIB MESYLATE
     Indication: CHRONIC MYELOID LEUKAEMIA
     Dosage: DOSAGE UNKNOWN
     Route: 048

REACTIONS (14)
  - Hypertension [Unknown]
  - Polycythaemia vera [Unknown]
  - Thrombocytosis [Unknown]
  - Gastrointestinal angiectasia [Unknown]
  - Renal impairment [Unknown]
  - Red blood cell poikilocytes [Unknown]
  - Janus kinase 2 mutation [Unknown]
  - Red blood cell anisocytes [Unknown]
  - Iron deficiency [Unknown]
  - Congenital thrombocyte disorder [Unknown]
  - Erythropoiesis abnormal [Unknown]
  - Myeloproliferative neoplasm [Unknown]
  - Neutrophilia [Unknown]
  - Marrow hyperplasia [Unknown]
